FAERS Safety Report 7073637-1 (Version None)
Quarter: 2010Q4

REPORT INFORMATION
  Report Type: 
  Country: None (occurrence: None)
  Receive Date: 20101029
  Receipt Date: 20100722
  Transmission Date: 20110411
  Serious: No
  Sender: FDA-Public Use
  Company Number: A0871909A

PATIENT
  Age: 53 Year
  Sex: Female

DRUGS (5)
  1. ADVAIR DISKUS 100/50 [Suspect]
     Indication: CHRONIC OBSTRUCTIVE PULMONARY DISEASE
     Dosage: 1PUFF TWICE PER DAY
     Route: 055
     Dates: start: 20100601, end: 20100722
  2. IBUPROFEN [Concomitant]
  3. ALBUTEROL [Concomitant]
  4. ANTACID TAB [Concomitant]
  5. BENADRYL [Concomitant]

REACTIONS (8)
  - BLEPHAROSPASM [None]
  - HEADACHE [None]
  - JOINT SWELLING [None]
  - MUSCLE TWITCHING [None]
  - SENSATION OF FOREIGN BODY [None]
  - SENSORY DISTURBANCE [None]
  - URTICARIA [None]
  - WITHDRAWAL SYNDROME [None]
